FAERS Safety Report 4863003-9 (Version None)
Quarter: 2005Q4

REPORT INFORMATION
  Report Type: 
  Country: None (occurrence: None)
  Receive Date: 20051221
  Receipt Date: 20051212
  Transmission Date: 20060501
  Serious: Yes (Death, Hospitalization)
  Sender: FDA-Public Use
  Company Number: IT-MERCK-0512USA02505

PATIENT
  Age: 63 Year
  Sex: Female

DRUGS (8)
  1. DECADRON [Suspect]
     Indication: MULTIPLE MYELOMA
     Route: 048
     Dates: start: 20021201
  2. DECADRON [Suspect]
     Route: 048
     Dates: start: 20031001
  3. DECADRON [Suspect]
     Route: 048
     Dates: start: 20020101
  4. VINCRISTINE SULFATE [Suspect]
     Route: 065
  5. DOXORUBICIN [Suspect]
     Route: 065
  6. THALIDOMIDE [Suspect]
     Indication: MULTIPLE MYELOMA
     Route: 065
     Dates: start: 20031001, end: 20030101
  7. THALIDOMIDE [Suspect]
     Route: 065
     Dates: start: 20030101
  8. HEPARIN [Concomitant]
     Indication: THROMBOSIS PROPHYLAXIS
     Route: 065
     Dates: start: 20030101

REACTIONS (7)
  - CARDIAC FAILURE [None]
  - CARDIOMEGALY [None]
  - DRUG INTOLERANCE [None]
  - MULTIPLE MYELOMA [None]
  - PULMONARY HYPERTENSION [None]
  - TRICUSPID VALVE INCOMPETENCE [None]
  - VENTRICULAR HYPERTROPHY [None]
